FAERS Safety Report 9378880 (Version 1)
Quarter: 2013Q3

REPORT INFORMATION
  Report Type: Spontaneous
  Country: US (occurrence: US)
  Receive Date: 20130702
  Receipt Date: 20130702
  Transmission Date: 20140515
  Serious: No
  Sender: FDA-Public Use
  Company Number: US-PFIZER INC-2013193432

PATIENT
  Sex: Female
  Weight: 58.96 kg

DRUGS (4)
  1. ADVIL [Suspect]
     Indication: SINUS DISORDER
     Dosage: 200 MG, AS NEEDED
     Dates: start: 2013
  2. ENALAPRIL [Concomitant]
     Indication: HYPERTENSION
     Dosage: 20 OR 25 MG, DAILY
  3. SIMVASTATIN [Concomitant]
     Indication: BLOOD CHOLESTEROL ABNORMAL
     Dosage: UNK
  4. ALLEGRA [Concomitant]
     Indication: SINUS DISORDER
     Dosage: UNK, DAILY

REACTIONS (6)
  - Drug ineffective [Unknown]
  - Off label use [Unknown]
  - Drug interaction [Unknown]
  - Dysgeusia [Recovering/Resolving]
  - Nausea [Unknown]
  - Abdominal discomfort [Recovering/Resolving]
